FAERS Safety Report 9240451 (Version 1)
Quarter: 2013Q2

REPORT INFORMATION
  Report Type: Spontaneous
  Country: US (occurrence: None)
  Receive Date: 20130417
  Receipt Date: 20130417
  Transmission Date: 20140414
  Serious: Yes (Hospitalization)
  Sender: FDA-Public Use
  Company Number: 2013AP004302

PATIENT
  Age: 43 Year
  Sex: Male

DRUGS (3)
  1. LITHIUM CARBONATE CAPSULES [Suspect]
     Indication: SCHIZOAFFECTIVE DISORDER
     Dates: start: 1986, end: 1997
  2. HALOPERIDOL [Concomitant]
  3. PALIPERIDONE [Concomitant]

REACTIONS (3)
  - Nephrogenic diabetes insipidus [None]
  - Hyponatraemia [None]
  - Polydipsia psychogenic [None]
